FAERS Safety Report 16342380 (Version 1)
Quarter: 2019Q2

REPORT INFORMATION
  Report Type: Spontaneous
  Country: US (occurrence: US)
  Receive Date: 20190522
  Receipt Date: 20190522
  Transmission Date: 20190711
  Serious: No
  Sender: FDA-Public Use
  Company Number: US-ROCHE-2272978

PATIENT
  Age: 26 Year
  Sex: Female
  Weight: 56.75 kg

DRUGS (1)
  1. XOFLUZA [Suspect]
     Active Substance: BALOXAVIR MARBOXIL
     Indication: INFLUENZA
     Dosage: 20 MG 2 TABLETS ONE TIME DOSE; ONGOING: NO
     Route: 048
     Dates: start: 20190220

REACTIONS (1)
  - Papule [Not Recovered/Not Resolved]
